FAERS Safety Report 10971510 (Version 2)
Quarter: 2015Q1

REPORT INFORMATION
  Report Type: Spontaneous
  Country: IT (occurrence: IT)
  Receive Date: 20150331
  Receipt Date: 20150331
  Transmission Date: 20150721
  Serious: Yes (Other)
  Sender: FDA-Public Use
  Company Number: IT-GLAXOSMITHKLINE-IT2015GSK039412

PATIENT
  Age: 41 Year
  Sex: Female

DRUGS (6)
  1. RADIOTHERAPY [Suspect]
     Active Substance: RADIATION THERAPY
     Indication: NON-HODGKIN^S LYMPHOMA
  2. CYTARABINE. [Concomitant]
     Active Substance: CYTARABINE
     Indication: NON-HODGKIN^S LYMPHOMA
     Route: 037
  3. NELARABINE [Suspect]
     Active Substance: NELARABINE
     Indication: NON-HODGKIN^S LYMPHOMA
     Dosage: 1500 MG/M2, CYC
  4. METHOTREXATE [Concomitant]
     Active Substance: METHOTREXATE
     Indication: NON-HODGKIN^S LYMPHOMA
     Route: 037
  5. CYCLOPHOSPHAMIDE. [Concomitant]
     Active Substance: CYCLOPHOSPHAMIDE
     Indication: NON-HODGKIN^S LYMPHOMA
     Dosage: TWO CYCLES OF 1500 MG/M2 ON DAYS 1,3 AND 5 OF A 21-DAY CYCLE
  6. BUSULFAN [Concomitant]
     Active Substance: BUSULFAN
     Indication: NON-HODGKIN^S LYMPHOMA

REACTIONS (6)
  - Myelopathy [Recovered/Resolved]
  - Sensory loss [Recovered/Resolved]
  - Urinary retention [Recovered/Resolved]
  - Ataxia [Recovered/Resolved]
  - Paraparesis [Recovered/Resolved]
  - Sphincter of Oddi dysfunction [Recovered/Resolved]
